FAERS Safety Report 10960445 (Version 1)
Quarter: 2015Q1

REPORT INFORMATION
  Report Type: Spontaneous
  Country: US (occurrence: None)
  Receive Date: 20150226
  Receipt Date: 20150226
  Transmission Date: 20150721
  Serious: Yes (Other)
  Sender: FDA-Public Use
  Company Number: TPA2012A04287

PATIENT
  Age: 86 Year
  Sex: Female
  Weight: 65.32 kg

DRUGS (1)
  1. ACTOS [Suspect]
     Active Substance: PIOGLITAZONE HYDROCHLORIDE
     Indication: DIABETES MELLITUS
     Dosage: BEFORE 2 YEARS

REACTIONS (2)
  - Cardiac failure congestive [None]
  - Oedema peripheral [None]
